FAERS Safety Report 17704831 (Version 3)
Quarter: 2020Q2

REPORT INFORMATION
  Report Type: Spontaneous
  Country: US (occurrence: US)
  Receive Date: 20200424
  Receipt Date: 20200504
  Transmission Date: 20200714
  Serious: Yes (Other)
  Sender: FDA-Public Use
  Company Number: US-SA-2020SA103575

PATIENT
  Age: 76 Year
  Sex: Female

DRUGS (1)
  1. CABLIVI [Suspect]
     Active Substance: CAPLACIZUMAB-YHDP
     Indication: THROMBOTIC MICROANGIOPATHY
     Dosage: 11 MG, QD
     Route: 058
     Dates: start: 20200408, end: 20200426

REACTIONS (3)
  - Upper gastrointestinal haemorrhage [Unknown]
  - Platelet count decreased [Unknown]
  - Treatment failure [Unknown]

NARRATIVE: CASE EVENT DATE: 20200415
